FAERS Safety Report 6477416-5 (Version None)
Quarter: 2009Q4

REPORT INFORMATION
  Report Type: 
  Country: None (occurrence: None)
  Receive Date: 20091207
  Receipt Date: 20091117
  Transmission Date: 20100525
  Serious: Yes (Other)
  Sender: FDA-Public Use
  Company Number: FR-SANOFI-AVENTIS-200917134GDDC

PATIENT
  Age: 64 Year
  Sex: Male
  Weight: 74 kg

DRUGS (10)
  1. BLINDED THERAPY [Suspect]
     Dosage: DOSE UNIT: 6 MG/KG
     Route: 042
     Dates: start: 20090608, end: 20090608
  2. DOCETAXEL [Suspect]
     Dosage: DOSE UNIT: 75 MG/M**2
     Route: 042
     Dates: start: 20090407, end: 20090407
  3. HYDROCHLOROTHIAZIDE/LOSARTAN POTASSIUM [Concomitant]
     Dates: start: 20081219
  4. LOSARTAN POTASSIUM AND HYDROCHLOROTHIAZIDE [Concomitant]
     Dates: start: 20081220
  5. AMLOR [Concomitant]
     Dates: start: 20090108
  6. SODIUM ALGINATE/SODIUM BICARBONATE [Concomitant]
     Dates: start: 20090113
  7. STOMATOLOGICALS, MOUTH PREPARATIONS [Concomitant]
     Dates: start: 20090224
  8. SODIUM HYPOCHLORITE [Concomitant]
     Dates: start: 20090518
  9. ESOMEPRAZOLE [Concomitant]
     Dates: start: 20090601
  10. HYPERIUM [Concomitant]
     Dates: start: 20090115

REACTIONS (2)
  - NEPHROTIC SYNDROME [None]
  - THROMBOTIC MICROANGIOPATHY [None]
